FAERS Safety Report 18200895 (Version 1)
Quarter: 2020Q3

REPORT INFORMATION
  Report Type: Spontaneous
  Country: US (occurrence: US)
  Receive Date: 20200827
  Receipt Date: 20200827
  Transmission Date: 20201103
  Serious: No
  Sender: FDA-Public Use
  Company Number: US-RECORDATI RARE DISEASES-2089073

PATIENT
  Age: 10 Month
  Sex: Female

DRUGS (2)
  1. LEVOCARNITINE. [Concomitant]
     Active Substance: LEVOCARNITINE
  2. CARBAGLU [Suspect]
     Active Substance: CARGLUMIC ACID
     Indication: FATTY ACID OXIDATION DISORDER
     Dates: start: 202005

REACTIONS (1)
  - Dyspnoea [Not Recovered/Not Resolved]

NARRATIVE: CASE EVENT DATE: 2020
